FAERS Safety Report 17147187 (Version 1)
Quarter: 2019Q4

REPORT INFORMATION
  Report Type: Spontaneous
  Country: JP (occurrence: JP)
  Receive Date: 20191212
  Receipt Date: 20191212
  Transmission Date: 20200122
  Serious: Yes (Other)
  Sender: FDA-Public Use
  Company Number: JP-ALLERGAN-1950415US

PATIENT
  Sex: Female

DRUGS (1)
  1. BOTOX [Suspect]
     Active Substance: ONABOTULINUMTOXINA
     Indication: FACIAL SPASM
     Dosage: UNK, SINGLE
     Route: 031

REACTIONS (8)
  - Medication error [Unknown]
  - Cataract traumatic [Unknown]
  - Cataract subcapsular [Unknown]
  - Corneal perforation [Unknown]
  - Anterior capsular rupture [Unknown]
  - Vision blurred [Unknown]
  - Posterior capsule rupture [Unknown]
  - Vitreous opacities [Unknown]
